FAERS Safety Report 7965254-3 (Version None)
Quarter: 2011Q4

REPORT INFORMATION
  Report Type: 
  Country: None (occurrence: None)
  Receive Date: 20111208
  Receipt Date: 20111128
  Transmission Date: 20120403
  Serious: Yes (Hospitalization)
  Sender: FDA-Public Use
  Company Number: US-BAYER-2011-035154

PATIENT
  Age: 20 Year
  Sex: Female
  Weight: 63.492 kg

DRUGS (6)
  1. LEVAQUIN [Concomitant]
     Dosage: UNK
     Dates: start: 20090310
  2. LEVAQUIN [Concomitant]
     Dosage: UNK
     Route: 048
     Dates: start: 20090314
  3. YAZ [Suspect]
     Indication: CONTRACEPTION
     Dosage: UNK
     Route: 048
     Dates: start: 20080702, end: 20090215
  4. ACETAMINOPHEN [Concomitant]
     Dosage: UNK
     Route: 048
     Dates: start: 20090310
  5. GENTAMICIN [Concomitant]
     Dosage: UNK
     Dates: start: 20090310
  6. VICODIN [Concomitant]
     Dosage: UNK
     Route: 048
     Dates: start: 20090314

REACTIONS (3)
  - GALLBLADDER DISORDER [None]
  - INJURY [None]
  - CHOLECYSTITIS CHRONIC [None]
